FAERS Safety Report 4732493-4 (Version None)
Quarter: 2005Q3

REPORT INFORMATION
  Report Type: 
  Country: None (occurrence: None)
  Receive Date: 20050803
  Receipt Date: 20050414
  Transmission Date: 20060218
  Serious: Yes (Other)
  Sender: FDA-Public Use
  Company Number: CA-GLAXOSMITHKLINE-A0554310A

PATIENT
  Age: 43 Year
  Sex: Female
  Weight: 113.6 kg

DRUGS (2)
  1. LAMICTAL [Suspect]
     Indication: BIPOLAR I DISORDER
     Route: 048
  2. COZAAR [Concomitant]
     Indication: HYPERTENSION
     Dosage: 75MG PER DAY

REACTIONS (7)
  - CONFUSIONAL STATE [None]
  - DISCOMFORT [None]
  - EMOTIONAL DISTRESS [None]
  - GENITAL DISORDER FEMALE [None]
  - GENITAL PAIN [None]
  - MENTAL DISORDER [None]
  - SUSPICIOUSNESS [None]
